FAERS Safety Report 4716483-3 (Version None)
Quarter: 2005Q3

REPORT INFORMATION
  Report Type: 
  Country: None (occurrence: None)
  Receive Date: 20050713
  Receipt Date: 20050707
  Transmission Date: 20060218
  Serious: Yes (Hospitalization)
  Sender: FDA-Public Use
  Company Number: 214385

PATIENT
  Age: 52 Year
  Sex: Female
  Weight: 80 kg

DRUGS (5)
  1. HERCEPTIN [Suspect]
     Indication: BREAST CANCER METASTATIC
     Dosage: SEE IMAGE, INTRAVENOUS
     Route: 042
     Dates: start: 20041202, end: 20041202
  2. HERCEPTIN [Suspect]
     Indication: BREAST CANCER METASTATIC
     Dosage: SEE IMAGE, INTRAVENOUS
     Route: 042
     Dates: start: 20041223, end: 20050324
  3. CAPECITABINE (CAPECITABINE) [Suspect]
     Indication: BREAST CANCER METASTATIC
     Dosage: 950 MG/M2, QD, ORAL
     Route: 048
     Dates: start: 20041202, end: 20050407
  4. DOCETAXEL (DOCETAXEL) [Suspect]
     Dosage: SEE IMAGE, INTRAVENOUS
     Route: 042
     Dates: start: 20041202, end: 20050106
  5. DOCETAXEL (DOCETAXEL) [Suspect]
     Dosage: SEE IMAGE, INTRAVENOUS
     Route: 042
     Dates: start: 20050113, end: 20050324

REACTIONS (6)
  - ALANINE AMINOTRANSFERASE INCREASED [None]
  - ASPARTATE AMINOTRANSFERASE INCREASED [None]
  - BLOOD ALKALINE PHOSPHATASE INCREASED [None]
  - BLOOD BILIRUBIN INCREASED [None]
  - INFLUENZA [None]
  - JAUNDICE [None]
